FAERS Safety Report 9382779 (Version 2)
Quarter: 2013Q4

REPORT INFORMATION
  Report Type: Spontaneous
  Country: GB (occurrence: GB)
  Receive Date: 20130703
  Receipt Date: 20131028
  Transmission Date: 20140711
  Serious: Yes (Other)
  Sender: FDA-Public Use
  Company Number: GB-MERCK-1307GBR001146

PATIENT
  Age: 70 Year
  Sex: Female

DRUGS (9)
  1. JANUVIA [Suspect]
     Dosage: 100 MG, QD
     Route: 048
     Dates: start: 20121119, end: 20130403
  2. AMILORIDE [Concomitant]
  3. ATORVASTATIN [Concomitant]
  4. GLICLAZIDE [Concomitant]
  5. LORATADINE [Concomitant]
  6. METFORMIN [Concomitant]
  7. OMEPRAZOLE [Concomitant]
     Dosage: UNK
  8. RAMIPRIL [Concomitant]
  9. TRAZODONE HYDROCHLORIDE [Concomitant]

REACTIONS (5)
  - Autoimmune hepatitis [Recovered/Resolved with Sequelae]
  - Anaemia [Not Recovered/Not Resolved]
  - Alanine aminotransferase increased [Recovered/Resolved with Sequelae]
  - Liver function test abnormal [Recovered/Resolved with Sequelae]
  - Weight decreased [Recovered/Resolved with Sequelae]
